FAERS Safety Report 15173235 (Version 2)
Quarter: 2021Q1

REPORT INFORMATION
  Report Type: Spontaneous
  Country: DE (occurrence: DE)
  Receive Date: 20180720
  Receipt Date: 20210112
  Transmission Date: 20210419
  Serious: Yes (Death)
  Sender: FDA-Public Use
  Company Number: DE-FRESENIUS KABI-FK201808024

PATIENT
  Age: 10 Month
  Sex: Male

DRUGS (1)
  1. PROTAMINE SULFATE (MANUFACTURER UNKNOWN) [Suspect]
     Active Substance: PROTAMINE SULFATE
     Indication: HEPARIN NEUTRALISATION THERAPY
     Route: 065

REACTIONS (6)
  - Cardiac failure [Fatal]
  - Ventricular failure [Fatal]
  - Myocardial oedema [Fatal]
  - Myocardial ischaemia [Fatal]
  - Product use issue [Fatal]
  - Multiple organ dysfunction syndrome [Fatal]
